FAERS Safety Report 20080894 (Version 1)
Quarter: 2021Q4

REPORT INFORMATION
  Report Type: Spontaneous
  Country: US (occurrence: US)
  Receive Date: 20211117
  Receipt Date: 20211117
  Transmission Date: 20220303
  Serious: Yes (Hospitalization, Other)
  Sender: FDA-Public Use
  Company Number: US-AMNEAL PHARMACEUTICALS-2021-AMRX-04622

PATIENT
  Sex: Male

DRUGS (3)
  1. VIGABATRIN [Suspect]
     Active Substance: VIGABATRIN
     Indication: Tuberous sclerosis complex
     Dosage: 2000 MILLIGRAM, DAILY
  2. VIGABATRIN [Suspect]
     Active Substance: VIGABATRIN
     Indication: Cerebral palsy
  3. VIGABATRIN [Suspect]
     Active Substance: VIGABATRIN
     Indication: Seizure

REACTIONS (1)
  - Pneumonia aspiration [Unknown]
